FAERS Safety Report 15595800 (Version 1)
Quarter: 2018Q4

REPORT INFORMATION
  Report Type: Spontaneous
  Country: US (occurrence: US)
  Receive Date: 20181107
  Receipt Date: 20181107
  Transmission Date: 20190205
  Serious: Yes (Hospitalization)
  Sender: FDA-Public Use
  Company Number: US-ROCHE-2210973

PATIENT
  Sex: Female

DRUGS (1)
  1. ESBRIET [Suspect]
     Active Substance: PIRFENIDONE
     Indication: IDIOPATHIC PULMONARY FIBROSIS
     Dosage: ONGOING: UNKNOWN
     Route: 048
     Dates: start: 20171202

REACTIONS (6)
  - Hepatic enzyme increased [Unknown]
  - Feeding disorder [Unknown]
  - Weight decreased [Unknown]
  - Asthenia [Unknown]
  - Hypotension [Unknown]
  - Back pain [Unknown]
